FAERS Safety Report 23871853 (Version 1)
Quarter: 2024Q2

REPORT INFORMATION
  Report Type: Spontaneous
  Country: US (occurrence: None)
  Receive Date: 20240520
  Receipt Date: 20240520
  Transmission Date: 20240715
  Serious: Yes (Other)
  Sender: FDA-Public Use
  Company Number: US-USWM, LLC-UWM202405-000041

PATIENT
  Age: 3 Year
  Sex: Female

DRUGS (8)
  1. IWILFIN [Suspect]
     Active Substance: EFLORNITHINE HYDROCHLORIDE
     Indication: Product used for unknown indication
     Dosage: 384 MG
     Dates: start: 20240216
  2. TYLENOL [Concomitant]
     Active Substance: ACETAMINOPHEN
     Dosage: NOT PROVIDED
  3. DEXAMETHASONE [Concomitant]
     Active Substance: DEXAMETHASONE
     Dosage: NOT PROVIDED
  4. CLOBAZAM [Concomitant]
     Active Substance: CLOBAZAM
  5. DIAZEPAM [Concomitant]
     Active Substance: DIAZEPAM
     Dosage: NOT PROVIDED
     Route: 054
  6. LACOSAMIDE [Concomitant]
     Active Substance: LACOSAMIDE
  7. SCOPOLAMINE [Concomitant]
     Active Substance: SCOPOLAMINE
  8. BACTRIM [Concomitant]
     Active Substance: SULFAMETHOXAZOLE\TRIMETHOPRIM
     Dosage: NOT PROVIDED

REACTIONS (1)
  - Neoplasm progression [Not Recovered/Not Resolved]

NARRATIVE: CASE EVENT DATE: 20240503
